FAERS Safety Report 9725541 (Version 2)
Quarter: 2014Q2

REPORT INFORMATION
  Report Type: Spontaneous
  Country: US (occurrence: None)
  Receive Date: 20131127
  Receipt Date: 20140401
  Transmission Date: 20141212
  Serious: Yes (Other)
  Sender: FDA-Public Use
  Company Number: 2013-US-003536

PATIENT
  Age: 63 Year
  Sex: Female
  Weight: 72.6 kg

DRUGS (8)
  1. XYREM [Suspect]
     Indication: NARCOLEPSY
     Dosage: 2.25 G, BID, ORAL
     Route: 048
     Dates: start: 201311, end: 201311
  2. FUROSEMIDE (FUROSEMIDE) [Concomitant]
  3. GABAPENTIN (GABAPENTIN) [Concomitant]
  4. ROPINIROLE (ROPINIROLE) [Concomitant]
  5. AMLODIPINE (AMLODIPINE BESILATE) [Concomitant]
  6. LISINOPRIL (LISINOPRIL) [Concomitant]
  7. LANTUS (INSULIN GLARGINE) [Concomitant]
  8. HUMALOG (INSULIN LISPRO) [Concomitant]

REACTIONS (2)
  - Blood glucose increased [None]
  - Hypokinesia [None]
